FAERS Safety Report 8456263-9 (Version None)
Quarter: 2012Q2

REPORT INFORMATION
  Report Type: 
  Country: None (occurrence: None)
  Receive Date: 20120621
  Receipt Date: 20120612
  Transmission Date: 20120825
  Serious: Yes (Other)
  Sender: FDA-Public Use
  Company Number: US-ASTRAZENECA-2012SE26347

PATIENT
  Age: 59 Year
  Sex: Male

DRUGS (5)
  1. DILANTIN [Interacting]
     Route: 065
  2. LAMICTAL [Interacting]
     Route: 065
  3. NEXIUM [Interacting]
     Route: 048
  4. CRESTOR [Suspect]
     Route: 048
  5. TOPROL-XL [Suspect]
     Route: 048

REACTIONS (3)
  - CONVULSION [None]
  - DRUG INTERACTION [None]
  - HEADACHE [None]
